FAERS Safety Report 10506950 (Version 6)
Quarter: 2015Q1

REPORT INFORMATION
  Report Type: Spontaneous
  Country: US (occurrence: US)
  Receive Date: 20141009
  Receipt Date: 20150331
  Transmission Date: 20150720
  Serious: Yes (Other)
  Sender: FDA-Public Use
  Company Number: US-JNJFOC-20141004041

PATIENT
  Age: 78 Year
  Sex: Male
  Weight: 102 kg

DRUGS (7)
  1. IMBRUVICA [Suspect]
     Active Substance: IBRUTINIB
     Indication: MANTLE CELL LYMPHOMA
     Route: 048
     Dates: start: 20140926
  2. IRON [Concomitant]
     Active Substance: IRON
     Indication: SUPPLEMENTATION THERAPY
  3. XARELTO [Suspect]
     Active Substance: RIVAROXABAN
     Indication: DEEP VEIN THROMBOSIS
     Dates: start: 201402, end: 20141125
  4. XARELTO [Suspect]
     Active Substance: RIVAROXABAN
     Indication: THROMBOSIS PROPHYLAXIS
     Dates: start: 201402, end: 20141125
  5. CYCLOBENZAPRINE [Concomitant]
     Active Substance: CYCLOBENZAPRINE
  6. IMBRUVICA [Suspect]
     Active Substance: IBRUTINIB
     Indication: MANTLE CELL LYMPHOMA
     Route: 048
     Dates: start: 20140723, end: 20140925
  7. TENORMIN [Concomitant]
     Active Substance: ATENOLOL
     Indication: HYPERTENSION

REACTIONS (8)
  - Epistaxis [Not Recovered/Not Resolved]
  - Contusion [Not Recovered/Not Resolved]
  - Haematotympanum [Not Recovered/Not Resolved]
  - Haematuria [Not Recovered/Not Resolved]
  - Potentiating drug interaction [Not Recovered/Not Resolved]
  - Blood blister [Not Recovered/Not Resolved]
  - Deafness [Not Recovered/Not Resolved]
  - Renal colic [Not Recovered/Not Resolved]

NARRATIVE: CASE EVENT DATE: 2014
